FAERS Safety Report 8121030-2 (Version None)
Quarter: 2012Q1

REPORT INFORMATION
  Report Type: 
  Country: None (occurrence: None)
  Receive Date: 20120203
  Receipt Date: 20120124
  Transmission Date: 20120608
  Serious: Yes (Life-Threatening)
  Sender: FDA-Public Use
  Company Number: 2012BN000001

PATIENT

DRUGS (3)
  1. MELPHALAN HYDROCHLORIDE [Suspect]
     Indication: SARCOMA
     Dosage: IART
     Route: 013
  2. RINGER ACETAT [Concomitant]
  3. TNF-ALPHA (NO PREF. NAME) [Suspect]
     Indication: SARCOMA
     Dosage: IART
     Route: 013

REACTIONS (1)
  - ACUTE MYOCARDIAL INFARCTION [None]
